FAERS Safety Report 6269656-5 (Version None)
Quarter: 2009Q3

REPORT INFORMATION
  Report Type: 
  Country: None (occurrence: None)
  Receive Date: 20090716
  Receipt Date: 20090714
  Transmission Date: 20100115
  Serious: Yes (Hospitalization)
  Sender: FDA-Public Use
  Company Number: US-RB-017831-09

PATIENT
  Sex: Male

DRUGS (4)
  1. SUBOXONE [Suspect]
     Route: 060
     Dates: start: 20070101
  2. PROZAC [Suspect]
     Indication: DEPRESSION
     Route: 065
     Dates: start: 20090401, end: 20090401
  3. CLONIDINE [Concomitant]
     Dosage: 0.2 MG
     Route: 065
  4. LORAZEPAM [Concomitant]
     Indication: ANXIETY
     Route: 065

REACTIONS (4)
  - DEPRESSION [None]
  - HYPOAESTHESIA [None]
  - INSOMNIA [None]
  - PARKINSONISM [None]
